FAERS Safety Report 13694825 (Version 3)
Quarter: 2019Q3

REPORT INFORMATION
  Report Type: Spontaneous
  Country: US (occurrence: US)
  Receive Date: 20170627
  Receipt Date: 20190703
  Transmission Date: 20191004
  Serious: No
  Sender: FDA-Public Use
  Company Number: US-PFIZER INC-2017277685

PATIENT
  Age: 70 Year
  Sex: Female

DRUGS (1)
  1. DEMEROL [Suspect]
     Active Substance: MEPERIDINE HYDROCHLORIDE
     Dosage: UNK

REACTIONS (7)
  - Crying [Unknown]
  - Drug hypersensitivity [Unknown]
  - Oedema [Unknown]
  - Erythema [Unknown]
  - Swelling [Unknown]
  - Rash erythematous [Unknown]
  - Rash generalised [Unknown]
